FAERS Safety Report 4299154-X (Version None)
Quarter: 2004Q1

REPORT INFORMATION
  Report Type: 
  Country: None (occurrence: None)
  Receive Date: 20040217
  Receipt Date: 20040114
  Transmission Date: 20041129
  Serious: Yes (Hospitalization)
  Sender: FDA-Public Use
  Company Number: US063900

PATIENT
  Age: 8 Year
  Sex: Female
  Weight: 25.8 kg

DRUGS (1)
  1. ETANERCEPT [Suspect]
     Indication: IDIOPATHIC THROMBOCYTOPENIC PURPURA
     Dosage: 0.5 ML, 2 IN 1 WEEKS, SC
     Route: 058
     Dates: start: 20030929, end: 20031215

REACTIONS (2)
  - PETECHIAE [None]
  - PLATELET COUNT DECREASED [None]
